FAERS Safety Report 14236336 (Version 7)
Quarter: 2018Q2

REPORT INFORMATION
  Report Type: Report from Study
  Country: US (occurrence: US)
  Receive Date: 20171129
  Receipt Date: 20180423
  Transmission Date: 20180711
  Serious: Yes (Hospitalization)
  Sender: FDA-Public Use
  Company Number: US-ASTRAZENECA-2017SE78523

PATIENT
  Age: 74 Year
  Sex: Female
  Weight: 58.2 kg

DRUGS (90)
  1. ACALABRUTINIB. [Suspect]
     Active Substance: ACALABRUTINIB
     Indication: MANTLE CELL LYMPHOMA
     Route: 048
     Dates: start: 20151231, end: 20151231
  2. ACALABRUTINIB. [Suspect]
     Active Substance: ACALABRUTINIB
     Indication: MANTLE CELL LYMPHOMA
     Route: 048
     Dates: start: 20160107, end: 20160107
  3. ACALABRUTINIB. [Suspect]
     Active Substance: ACALABRUTINIB
     Indication: MANTLE CELL LYMPHOMA
     Route: 048
     Dates: start: 20160107, end: 20160107
  4. ACALABRUTINIB. [Suspect]
     Active Substance: ACALABRUTINIB
     Indication: MANTLE CELL LYMPHOMA
     Route: 048
     Dates: start: 20161115, end: 20161115
  5. ACALABRUTINIB. [Suspect]
     Active Substance: ACALABRUTINIB
     Indication: MANTLE CELL LYMPHOMA
     Route: 048
     Dates: start: 20161116, end: 20170105
  6. ACALABRUTINIB. [Suspect]
     Active Substance: ACALABRUTINIB
     Indication: MANTLE CELL LYMPHOMA
     Route: 048
     Dates: start: 20170228, end: 20170305
  7. ACALABRUTINIB. [Suspect]
     Active Substance: ACALABRUTINIB
     Indication: MANTLE CELL LYMPHOMA
     Route: 048
     Dates: start: 20170424, end: 20170516
  8. METFORMIN [Concomitant]
     Active Substance: METFORMIN HYDROCHLORIDE
     Indication: HYPERGLYCAEMIA
     Route: 048
     Dates: start: 20170304
  9. DULOXETINE. [Concomitant]
     Active Substance: DULOXETINE
     Indication: DEPRESSION
     Route: 048
     Dates: start: 20140529
  10. RISPERIDONE. [Concomitant]
     Active Substance: RISPERIDONE
     Indication: AGITATION
     Dosage: 1 MG, AT BEDTIME
     Route: 048
     Dates: start: 20140515
  11. TRAMADOL. [Concomitant]
     Active Substance: TRAMADOL
     Indication: HEADACHE
     Dosage: 1.0DF AS REQUIRED
     Route: 048
     Dates: start: 20151231
  12. TRAMADOL. [Concomitant]
     Active Substance: TRAMADOL
     Indication: PAIN IN EXTREMITY
     Dosage: 50 MG 8 HOURS PER NEEDED AS REQUIRED
     Route: 048
     Dates: start: 20170727, end: 20170728
  13. ONDANSETRON [Concomitant]
     Active Substance: ONDANSETRON
     Indication: VOMITING
     Dosage: 8 MG, AS REQUIRED
     Route: 042
     Dates: start: 20170727, end: 20170728
  14. ONDANSETRON [Concomitant]
     Active Substance: ONDANSETRON
     Indication: VOMITING
     Dosage: 4 MG, 8 HOURS AS NEEDED
     Route: 048
     Dates: start: 20170802, end: 20170808
  15. ONDANSETRON [Concomitant]
     Active Substance: ONDANSETRON
     Indication: NAUSEA
     Route: 048
     Dates: start: 20170913
  16. ACALABRUTINIB. [Suspect]
     Active Substance: ACALABRUTINIB
     Indication: MANTLE CELL LYMPHOMA
     Route: 048
     Dates: start: 20151217, end: 20151217
  17. ACALABRUTINIB. [Suspect]
     Active Substance: ACALABRUTINIB
     Indication: MANTLE CELL LYMPHOMA
     Route: 048
     Dates: start: 20170518, end: 20170718
  18. ACALABRUTINIB. [Suspect]
     Active Substance: ACALABRUTINIB
     Indication: MANTLE CELL LYMPHOMA
     Route: 048
     Dates: start: 20171011, end: 20171011
  19. METFORMIN [Concomitant]
     Active Substance: METFORMIN HYDROCHLORIDE
     Indication: HYPERGLYCAEMIA
     Route: 048
     Dates: start: 20140529, end: 20170228
  20. TRAMADOL. [Concomitant]
     Active Substance: TRAMADOL
     Indication: PAIN IN EXTREMITY
     Dosage: 50 MG 8 HOURS PER NEEDED AS REQUIRED
     Route: 048
     Dates: start: 20170802
  21. PROMETHAZINE [Concomitant]
     Active Substance: PROMETHAZINE\PROMETHAZINE HYDROCHLORIDE
     Indication: VOMITING
     Dosage: 12.5 MG, EVERY 6 HOURS AS NEEDED
     Route: 042
     Dates: start: 20170301, end: 20170303
  22. PROMETHAZINE [Concomitant]
     Active Substance: PROMETHAZINE\PROMETHAZINE HYDROCHLORIDE
     Indication: NAUSEA
     Dosage: 12.5 MG, EVERY 6 HOURS AS NEEDED
     Route: 042
     Dates: start: 20170728, end: 20170801
  23. ZOLPIDEM TARTRATE. [Concomitant]
     Active Substance: ZOLPIDEM TARTRATE
     Indication: INSOMNIA
     Route: 048
     Dates: start: 20140515
  24. DOCUSATE SODIUM. [Concomitant]
     Active Substance: DOCUSATE SODIUM
     Indication: COUGH
     Route: 048
     Dates: start: 20170109
  25. ONDANSETRON [Concomitant]
     Active Substance: ONDANSETRON
     Indication: VOMITING
     Dosage: 8 MG, AS REQUIRED
     Route: 048
     Dates: start: 20170809
  26. ACALABRUTINIB. [Suspect]
     Active Substance: ACALABRUTINIB
     Indication: MANTLE CELL LYMPHOMA
     Route: 048
     Dates: start: 20170120, end: 20170206
  27. ACALABRUTINIB. [Suspect]
     Active Substance: ACALABRUTINIB
     Indication: MANTLE CELL LYMPHOMA
     Route: 048
     Dates: start: 20170413, end: 20170413
  28. TRAMADOL. [Concomitant]
     Active Substance: TRAMADOL
     Indication: PAIN IN EXTREMITY
     Dosage: 1.0DF AS REQUIRED
     Route: 048
     Dates: start: 20151231
  29. LEVEMIR [Concomitant]
     Active Substance: INSULIN DETEMIR
     Indication: DIABETES MELLITUS
     Dosage: AT BEDTIME
     Route: 058
     Dates: start: 20140529
  30. ONDANSETRON [Concomitant]
     Active Substance: ONDANSETRON
     Indication: NAUSEA
     Dosage: 4 MG, ONE TIME ONLY
     Route: 048
     Dates: start: 20170621, end: 20170727
  31. ONDANSETRON [Concomitant]
     Active Substance: ONDANSETRON
     Indication: NAUSEA
     Dosage: 8 MG, AS REQUIRED
     Route: 042
     Dates: start: 20170727, end: 20170728
  32. OMEPRAZOLE. [Concomitant]
     Active Substance: OMEPRAZOLE
     Indication: GASTRITIS
     Dosage: 40 MG, ONE TIME ONLY
     Route: 048
     Dates: start: 20170517, end: 20170719
  33. ACALABRUTINIB. [Suspect]
     Active Substance: ACALABRUTINIB
     Indication: MANTLE CELL LYMPHOMA
     Route: 048
     Dates: start: 20160106, end: 20160106
  34. ACALABRUTINIB. [Suspect]
     Active Substance: ACALABRUTINIB
     Indication: MANTLE CELL LYMPHOMA
     Route: 048
     Dates: start: 20170223, end: 20170227
  35. LEVOTHYROXINE. [Concomitant]
     Active Substance: LEVOTHYROXINE
     Indication: HYPOTHYROIDISM
     Route: 048
     Dates: start: 20071002
  36. TRAMADOL. [Concomitant]
     Active Substance: TRAMADOL
     Indication: COLITIS
     Dosage: 50 MG 8 HOURS PER NEEDED AS REQUIRED
     Route: 048
     Dates: start: 20170727, end: 20170728
  37. TRAMADOL. [Concomitant]
     Active Substance: TRAMADOL
     Indication: PAIN IN EXTREMITY
     Dosage: 50 MG EVERY 6 HOURS PER NEEDED AS REQUIRED
     Route: 048
     Dates: start: 20170728, end: 20170801
  38. TRAMADOL. [Concomitant]
     Active Substance: TRAMADOL
     Indication: COLITIS
     Dosage: 50 MG 8 HOURS PER NEEDED AS REQUIRED
     Route: 048
     Dates: start: 20170802
  39. ONGLYZA [Concomitant]
     Active Substance: SAXAGLIPTIN HYDROCHLORIDE
     Indication: DIABETES MELLITUS
     Route: 048
     Dates: start: 20150515
  40. VICKS NYQUIL [Concomitant]
     Active Substance: ACETAMINOPHEN\DEXTROMETHORPHAN HYDROBROMIDE\DOXYLAMINE SUCCINATE
     Indication: COUGH
     Dosage: 325.0MG AS REQUIRED
     Route: 048
     Dates: start: 20151213
  41. SENNA-DOCUSATE [Concomitant]
     Active Substance: DOCUSATE SODIUM\SENNOSIDES
     Indication: COUGH
     Dosage: 8.6 TO 5 MG, TWICE A DAY
     Route: 048
     Dates: start: 20170107
  42. ONDANSETRON [Concomitant]
     Active Substance: ONDANSETRON
     Indication: NAUSEA
     Dosage: 4 MG, 8 HOURS AS NEEDED
     Route: 048
     Dates: start: 20170802, end: 20170808
  43. ACALABRUTINIB. [Suspect]
     Active Substance: ACALABRUTINIB
     Indication: MANTLE CELL LYMPHOMA
     Route: 048
     Dates: start: 20160101, end: 20160106
  44. ACALABRUTINIB. [Suspect]
     Active Substance: ACALABRUTINIB
     Indication: MANTLE CELL LYMPHOMA
     Route: 048
     Dates: start: 20170208, end: 20170208
  45. ACALABRUTINIB. [Suspect]
     Active Substance: ACALABRUTINIB
     Indication: MANTLE CELL LYMPHOMA
     Route: 048
     Dates: start: 20170209, end: 20170209
  46. ACALABRUTINIB. [Suspect]
     Active Substance: ACALABRUTINIB
     Indication: MANTLE CELL LYMPHOMA
     Route: 048
     Dates: start: 20170222, end: 20170222
  47. ACALABRUTINIB. [Suspect]
     Active Substance: ACALABRUTINIB
     Indication: MANTLE CELL LYMPHOMA
     Route: 048
     Dates: start: 20170406, end: 20170412
  48. DAPAGLIFLOZIN. [Concomitant]
     Active Substance: DAPAGLIFLOZIN
     Indication: DIABETES MELLITUS
     Route: 048
     Dates: start: 20150506
  49. HYDROCODONE [Concomitant]
     Active Substance: HYDROCODONE
     Indication: PAIN IN EXTREMITY
     Dosage: 300.0MG AS REQUIRED
     Route: 048
     Dates: start: 20151211
  50. TRAMADOL. [Concomitant]
     Active Substance: TRAMADOL
     Indication: COLITIS
     Dosage: 50 MG EVERY 6 HOURS PER NEEDED AS REQUIRED
     Route: 048
     Dates: start: 20170728, end: 20170801
  51. FLAGYL [Concomitant]
     Active Substance: METRONIDAZOLE\METRONIDAZOLE HYDROCHLORIDE
     Indication: DIARRHOEA
     Dosage: 500 MG, THREE TIMES A DAY FOR 14 DAYS
     Route: 048
     Dates: start: 20170302
  52. MORPHINE [Concomitant]
     Active Substance: MORPHINE
     Indication: MUSCULOSKELETAL PAIN
     Dosage: 1 MG, EVERY TWO HOURS, AS NEEDED
     Route: 042
     Dates: start: 20170106, end: 20170107
  53. MORPHINE [Concomitant]
     Active Substance: MORPHINE
     Indication: MUSCULOSKELETAL PAIN
     Dosage: 1 MG, EVERY THREE HOURS, AS NEEDED
     Route: 042
     Dates: start: 20170109
  54. ACALABRUTINIB. [Suspect]
     Active Substance: ACALABRUTINIB
     Indication: MANTLE CELL LYMPHOMA
     Route: 048
     Dates: start: 20161019, end: 20161114
  55. ACALABRUTINIB. [Suspect]
     Active Substance: ACALABRUTINIB
     Indication: MANTLE CELL LYMPHOMA
     Route: 048
     Dates: start: 20170210, end: 20170221
  56. ACALABRUTINIB. [Suspect]
     Active Substance: ACALABRUTINIB
     Indication: MANTLE CELL LYMPHOMA
     Route: 048
     Dates: start: 20170414, end: 20170414
  57. ALPRAZOLAM. [Concomitant]
     Active Substance: ALPRAZOLAM
     Indication: ANXIETY
     Route: 048
     Dates: start: 20140529
  58. TRAMADOL. [Concomitant]
     Active Substance: TRAMADOL
     Indication: COLITIS
     Dosage: 1.0DF AS REQUIRED
     Route: 048
     Dates: start: 20151231
  59. TRAMADOL. [Concomitant]
     Active Substance: TRAMADOL
     Indication: HEADACHE
     Dosage: 50 MG 8 HOURS PER NEEDED AS REQUIRED
     Route: 048
     Dates: start: 20170727, end: 20170728
  60. TRAMADOL. [Concomitant]
     Active Substance: TRAMADOL
     Indication: HEADACHE
     Dosage: 50 MG EVERY 6 HOURS PER NEEDED AS REQUIRED
     Route: 048
     Dates: start: 20170728, end: 20170801
  61. TRAMADOL. [Concomitant]
     Active Substance: TRAMADOL
     Indication: HEADACHE
     Dosage: 50 MG 8 HOURS PER NEEDED AS REQUIRED
     Route: 048
     Dates: start: 20170802
  62. PROMETHAZINE [Concomitant]
     Active Substance: PROMETHAZINE\PROMETHAZINE HYDROCHLORIDE
     Indication: NAUSEA
     Dosage: 12.5 MG, EVERY 6 HOURS AS NEEDED
     Route: 042
     Dates: start: 20170301, end: 20170303
  63. PROMETHAZINE [Concomitant]
     Active Substance: PROMETHAZINE\PROMETHAZINE HYDROCHLORIDE
     Indication: NAUSEA
     Route: 048
     Dates: start: 20170619, end: 20170727
  64. PROMETHAZINE [Concomitant]
     Active Substance: PROMETHAZINE\PROMETHAZINE HYDROCHLORIDE
     Indication: VOMITING
     Dosage: 12.5 MG, EVERY 6 HOURS AS NEEDED
     Route: 042
     Dates: start: 20170728, end: 20170801
  65. VICKS DAYQUIL [Concomitant]
     Active Substance: DEXTROMETHORPHAN HYDROBROMIDE\GUAIFENESIN
     Indication: COUGH
     Dosage: 2.0DF AS REQUIRED
     Route: 048
     Dates: start: 20151213
  66. ONDANSETRON [Concomitant]
     Active Substance: ONDANSETRON
     Indication: VOMITING
     Dosage: 4 MG, ONE TIME ONLY
     Route: 048
     Dates: start: 20170621, end: 20170727
  67. ACALABRUTINIB. [Suspect]
     Active Substance: ACALABRUTINIB
     Indication: MANTLE CELL LYMPHOMA
     Route: 048
     Dates: start: 20151210, end: 20151210
  68. ACALABRUTINIB. [Suspect]
     Active Substance: ACALABRUTINIB
     Indication: MANTLE CELL LYMPHOMA
     Route: 048
     Dates: start: 20151211, end: 20151216
  69. ACALABRUTINIB. [Suspect]
     Active Substance: ACALABRUTINIB
     Indication: MANTLE CELL LYMPHOMA
     Route: 048
     Dates: start: 20151218, end: 20151222
  70. ACALABRUTINIB. [Suspect]
     Active Substance: ACALABRUTINIB
     Indication: MANTLE CELL LYMPHOMA
     Route: 048
     Dates: start: 20170107, end: 20170118
  71. ACALABRUTINIB. [Suspect]
     Active Substance: ACALABRUTINIB
     Indication: MANTLE CELL LYMPHOMA
     Route: 048
     Dates: start: 20160119, end: 20160119
  72. ACALABRUTINIB. [Suspect]
     Active Substance: ACALABRUTINIB
     Indication: MANTLE CELL LYMPHOMA
     Route: 048
     Dates: start: 20170207, end: 20170207
  73. ACALABRUTINIB. [Suspect]
     Active Substance: ACALABRUTINIB
     Indication: MANTLE CELL LYMPHOMA
     Route: 048
     Dates: start: 20170321, end: 20170404
  74. ACALABRUTINIB. [Suspect]
     Active Substance: ACALABRUTINIB
     Indication: MANTLE CELL LYMPHOMA
     Route: 048
     Dates: start: 20171006, end: 20171010
  75. DULOXETINE. [Concomitant]
     Active Substance: DULOXETINE
     Indication: ANXIETY
     Route: 048
     Dates: start: 20140529
  76. FOLIC ACID. [Concomitant]
     Active Substance: FOLIC ACID
     Indication: NUTRITIONAL SUPPLEMENTATION
     Route: 048
     Dates: start: 20070718
  77. PROMETHAZINE [Concomitant]
     Active Substance: PROMETHAZINE\PROMETHAZINE HYDROCHLORIDE
     Indication: VOMITING
     Route: 048
     Dates: start: 20170619, end: 20170727
  78. ONDANSETRON [Concomitant]
     Active Substance: ONDANSETRON
     Indication: NAUSEA
     Dosage: 8 MG, AS REQUIRED
     Route: 048
     Dates: start: 20170809
  79. ACALABRUTINIB. [Suspect]
     Active Substance: ACALABRUTINIB
     Indication: MANTLE CELL LYMPHOMA
     Route: 048
     Dates: start: 20151223, end: 20151223
  80. ACALABRUTINIB. [Suspect]
     Active Substance: ACALABRUTINIB
     Indication: MANTLE CELL LYMPHOMA
     Route: 048
     Dates: start: 20151224, end: 20151230
  81. ACALABRUTINIB. [Suspect]
     Active Substance: ACALABRUTINIB
     Indication: MANTLE CELL LYMPHOMA
     Route: 048
     Dates: start: 20160108, end: 20160203
  82. ACALABRUTINIB. [Suspect]
     Active Substance: ACALABRUTINIB
     Indication: MANTLE CELL LYMPHOMA
     Route: 048
     Dates: start: 20170306, end: 20170320
  83. ACALABRUTINIB. [Suspect]
     Active Substance: ACALABRUTINIB
     Indication: MANTLE CELL LYMPHOMA
     Route: 048
     Dates: start: 20170405, end: 20170405
  84. ACALABRUTINIB. [Suspect]
     Active Substance: ACALABRUTINIB
     Indication: MANTLE CELL LYMPHOMA
     Route: 048
     Dates: start: 20170719, end: 20170802
  85. ACALABRUTINIB. [Suspect]
     Active Substance: ACALABRUTINIB
     Indication: MANTLE CELL LYMPHOMA
     Route: 048
     Dates: start: 20170803, end: 20170911
  86. ACALABRUTINIB. [Suspect]
     Active Substance: ACALABRUTINIB
     Indication: MANTLE CELL LYMPHOMA
     Route: 048
     Dates: start: 20171012, end: 20171012
  87. GABAPENTIN. [Concomitant]
     Active Substance: GABAPENTIN
     Indication: NEUROPATHY PERIPHERAL
     Route: 048
     Dates: start: 20070718
  88. NYSTATIN. [Concomitant]
     Active Substance: NYSTATIN
     Indication: INTERTRIGO
     Route: 061
     Dates: start: 20170302
  89. AMOXICILLIN. [Concomitant]
     Active Substance: AMOXICILLIN
     Indication: URINARY TRACT INFECTION
     Route: 048
     Dates: start: 20161206
  90. ONDANSETRON [Concomitant]
     Active Substance: ONDANSETRON
     Indication: VOMITING
     Route: 048
     Dates: start: 20170913

REACTIONS (1)
  - Colitis [Recovered/Resolved]

NARRATIVE: CASE EVENT DATE: 20170727
